FAERS Safety Report 16135555 (Version 1)
Quarter: 2019Q1

REPORT INFORMATION
  Report Type: Spontaneous
  Country: ES (occurrence: ES)
  Receive Date: 20190329
  Receipt Date: 20190329
  Transmission Date: 20190418
  Serious: Yes (Life-Threatening, Hospitalization)
  Sender: FDA-Public Use
  Company Number: ES-TEVA-2019-ES-1031019

PATIENT
  Sex: Male

DRUGS (3)
  1. TROMALYT [Suspect]
     Active Substance: ASPIRIN
     Dosage: 300 MILLIGRAM DAILY;
     Route: 048
     Dates: end: 20060111
  2. PANTECTA 20MG 28 COMP REC GASTRORR FRASCO [Suspect]
     Active Substance: PANTOPRAZOLE SODIUM
     Dosage: 20 MILLIGRAM DAILY;
     Route: 048
     Dates: end: 20060111
  3. OMEPRAZOLE. [Suspect]
     Active Substance: OMEPRAZOLE
     Dosage: 13.33 MILLIGRAM DAILY;
     Route: 042
     Dates: start: 20060111, end: 20060115

REACTIONS (1)
  - Gastrointestinal haemorrhage [Recovered/Resolved]
